FAERS Safety Report 7918419-0 (Version None)
Quarter: 2011Q4

REPORT INFORMATION
  Report Type: 
  Country: None (occurrence: None)
  Receive Date: 20111114
  Receipt Date: 20111108
  Transmission Date: 20120403
  Serious: Yes (Hospitalization, Other)
  Sender: FDA-Public Use
  Company Number: AUR-APL-2011-05741

PATIENT
  Age: 32 Year
  Sex: Female

DRUGS (5)
  1. CALCIUM CARBONATE [Concomitant]
  2. IBUPROFEN [Concomitant]
  3. VITAMIN D (ERGOCALVIFEROL) [Concomitant]
  4. LEVOTHYROXINE SODIUM [Concomitant]
  5. SERTRALINE HYDROCHLORIDE [Suspect]
     Indication: PRODUCT USED FOR UNKNOWN INDICATION
     Dosage: 200 MG (200 MG, 1 IN 1 D)
     Dates: start: 20110701

REACTIONS (2)
  - SUBDURAL HAEMATOMA [None]
  - DRUG INTERACTION [None]
